FAERS Safety Report 10029817 (Version 1)
Quarter: 2014Q1

REPORT INFORMATION
  Report Type: Spontaneous
  Country: US (occurrence: None)
  Receive Date: 20140320
  Receipt Date: 20140320
  Transmission Date: 20141002
  Serious: Yes (Hospitalization)
  Sender: FDA-Public Use
  Company Number: UTC-045745

PATIENT
  Age: 67 Year
  Sex: Female

DRUGS (1)
  1. REMODULIN (2.5 MILLIGRAM/MILLILITERS, INJECTION FOR INFUSION) (TREPROSTINIL SODIUM) [Suspect]
     Indication: PULMONARY ARTERIAL HYPERTENSION
     Dosage: (0.054 UG/KG, 1 IN 1 MIN)?
     Route: 041
     Dates: start: 20090309

REACTIONS (1)
  - Renal impairment [None]
